FAERS Safety Report 4879923-5 (Version None)
Quarter: 2006Q1

REPORT INFORMATION
  Report Type: 
  Country: None (occurrence: None)
  Receive Date: 20060113
  Receipt Date: 20051123
  Transmission Date: 20060701
  Serious: Yes (Hospitalization)
  Sender: FDA-Public Use
  Company Number: ES-MERCK-0511ESP00034

PATIENT
  Age: 48 Year
  Sex: Male

DRUGS (5)
  1. VIOXX [Suspect]
     Indication: RHEUMATOID ARTHRITIS
     Route: 048
     Dates: start: 20020601, end: 20041001
  2. ACETAMINOPHEN [Concomitant]
     Route: 048
  3. IBUPROFEN [Concomitant]
     Indication: RHEUMATOID ARTHRITIS
     Route: 065
     Dates: start: 20041001
  4. OMEPRAZOLE [Concomitant]
     Route: 065
     Dates: start: 20041001
  5. ETORICOXIB [Suspect]
     Indication: RHEUMATOID ARTHRITIS
     Route: 065
     Dates: start: 19990101, end: 20020601

REACTIONS (1)
  - MYOCARDIAL INFARCTION [None]
